FAERS Safety Report 17251673 (Version 3)
Quarter: 2020Q1

REPORT INFORMATION
  Report Type: Report from Study
  Country: US (occurrence: US)
  Receive Date: 20200109
  Receipt Date: 20200214
  Transmission Date: 20200409
  Serious: Yes (Hospitalization)
  Sender: FDA-Public Use
  Company Number: NVSC2019US067037

PATIENT
  Age: 17 Year
  Sex: Male

DRUGS (9)
  1. METHOTREXATE. [Suspect]
     Active Substance: METHOTREXATE
     Dosage: 37.5 MILLIGRAM, WEEKLY
     Route: 048
     Dates: start: 20191021, end: 20191130
  2. MERCAPTOPURINE. [Suspect]
     Active Substance: MERCAPTOPURINE
     Indication: LYMPHOCYTIC LEUKAEMIA
     Dosage: 150 MILLIGRAM/125 MILLIGRAM, BID
     Route: 048
     Dates: start: 20191014, end: 20191130
  3. INC424A [Suspect]
     Active Substance: RUXOLITINIB
     Indication: LYMPHOCYTIC LEUKAEMIA
     Dosage: 95 MG, QD (14 DAYS ON/OFF)
     Route: 048
     Dates: start: 20191014, end: 20191209
  4. INC424A [Suspect]
     Active Substance: RUXOLITINIB
     Dosage: 95 MG, QD (14 DAYS ON/OFF)
     Route: 048
     Dates: start: 20191216
  5. VINCRISTINE [Suspect]
     Active Substance: VINCRISTINE
     Indication: LYMPHOCYTIC LEUKAEMIA
     Dosage: 2 MILLIGRAM, ONCE (DAY 1, 29, 57)
     Route: 042
     Dates: start: 20191014
  6. PREDNISONE. [Suspect]
     Active Substance: PREDNISONE
     Indication: LYMPHOCYTIC LEUKAEMIA
     Dosage: 40 MILLIGRAM/35 MILLIGRAM, BID (5 DAYS)
     Route: 048
     Dates: start: 20191014
  7. MERCAPTOPURINE. [Suspect]
     Active Substance: MERCAPTOPURINE
     Dosage: 50 MILLIGRAM MON-WED-FRI / 25 MILLIGRAM SUN-TUE-THURS-SAT
     Route: 048
     Dates: start: 20191216
  8. METHOTREXATE. [Suspect]
     Active Substance: METHOTREXATE
     Indication: LYMPHOCYTIC LEUKAEMIA
     Dosage: 95 MILLIGRAM, ONCE (DAY 1 AND 29)
     Route: 037
     Dates: start: 20191014
  9. METHOTREXATE. [Suspect]
     Active Substance: METHOTREXATE
     Dosage: 37.5 MILLIGRAM, WEEKLY
     Route: 048
     Dates: start: 20191216

REACTIONS (2)
  - Pancreatitis [Recovered/Resolved]
  - Oesophagitis [Recovered/Resolved]

NARRATIVE: CASE EVENT DATE: 20191129
